FAERS Safety Report 4948060-3 (Version None)
Quarter: 2006Q1

REPORT INFORMATION
  Report Type: 
  Country: None (occurrence: None)
  Receive Date: 20060313
  Receipt Date: 20060302
  Transmission Date: 20060701
  Serious: Yes (Life-Threatening, Hospitalization)
  Sender: FDA-Public Use
  Company Number: 2003-12-0682

PATIENT
  Age: 47 Year
  Sex: Male

DRUGS (14)
  1. PHENYTOIN [Suspect]
     Indication: EPILEPSY
     Dosage: 500 MG QD
     Dates: start: 20030913, end: 20031201
  2. TEMODAL [Suspect]
     Indication: GLIOBLASTOMA
     Dosage: SEE IMAGE
     Route: 048
     Dates: start: 20030925, end: 20030929
  3. TEMODAL [Suspect]
     Indication: GLIOBLASTOMA
     Dosage: SEE IMAGE
     Route: 048
     Dates: start: 20031022, end: 20031026
  4. TEMODAL [Suspect]
     Indication: GLIOBLASTOMA
     Dosage: SEE IMAGE
     Route: 048
     Dates: start: 20031120, end: 20031124
  5. TEMODAL [Suspect]
     Indication: GLIOBLASTOMA
     Dosage: SEE IMAGE
     Route: 048
     Dates: start: 20040510, end: 20040514
  6. TEMODAL [Suspect]
     Indication: GLIOBLASTOMA
     Dosage: SEE IMAGE
     Route: 048
     Dates: start: 20040609, end: 20040613
  7. TEMODAL [Suspect]
     Indication: GLIOBLASTOMA
     Dosage: SEE IMAGE
     Route: 048
     Dates: start: 20040706, end: 20040710
  8. TEMODAL [Suspect]
     Indication: GLIOBLASTOMA
     Dosage: SEE IMAGE
     Route: 048
     Dates: start: 20030925, end: 20040809
  9. TEMODAL [Suspect]
     Indication: GLIOBLASTOMA
     Dosage: SEE IMAGE
     Route: 048
     Dates: start: 20040805, end: 20040809
  10. NAVOBAN [Concomitant]
  11. PREDNISON [Concomitant]
  12. NEXIUM [Concomitant]
  13. MYCOSTATIN [Concomitant]
  14. TEMESTA [Concomitant]

REACTIONS (3)
  - ERYTHEMA MULTIFORME [None]
  - PYREXIA [None]
  - TOXIC EPIDERMAL NECROLYSIS [None]
